FAERS Safety Report 10045174 (Version 2)
Quarter: 2014Q2

REPORT INFORMATION
  Report Type: Spontaneous
  Country: US (occurrence: None)
  Receive Date: 20140326
  Receipt Date: 20140407
  Transmission Date: 20141212
  Serious: Yes (Death)
  Sender: FDA-Public Use
  Company Number: 2014P1002286

PATIENT
  Age: 30 Year
  Sex: Male

DRUGS (1)
  1. MYORISAN [Suspect]
     Indication: ACNE
     Route: 048
     Dates: start: 20131210

REACTIONS (3)
  - Road traffic accident [None]
  - Brain injury [None]
  - Internal injury [None]
